FAERS Safety Report 21849089 (Version 1)
Quarter: 2023Q1

REPORT INFORMATION
  Report Type: Spontaneous
  Country: US (occurrence: None)
  Receive Date: 20230110
  Receipt Date: 20230110
  Transmission Date: 20230418
  Serious: Yes (Hospitalization)
  Sender: FDA-Public Use
  Company Number: None

PATIENT
  Age: 69 Year
  Sex: Female

DRUGS (13)
  1. OPSUMIT [Suspect]
     Active Substance: MACITENTAN
     Indication: Pulmonary hypertension
     Dosage: FREQUENCY : DAILY;?
     Route: 048
     Dates: start: 20170105
  2. SILDENAFIL [Concomitant]
     Active Substance: SILDENAFIL
  3. REMODULIN [Concomitant]
     Active Substance: TREPROSTINIL
  4. BUMETANIDE [Concomitant]
     Active Substance: BUMETANIDE
  5. OXYCODONE [Concomitant]
     Active Substance: OXYCODONE
  6. OMEPRAZOLE [Concomitant]
     Active Substance: OMEPRAZOLE
  7. WIXELA INHUB [Concomitant]
     Active Substance: FLUTICASONE PROPIONATE\SALMETEROL XINAFOATE
  8. SPIRONOLACTONE [Concomitant]
     Active Substance: SPIRONOLACTONE
  9. TAPAZOLE [Concomitant]
     Active Substance: METHIMAZOLE
  10. METHOTREXATE [Concomitant]
     Active Substance: METHOTREXATE
  11. PREDNISONE [Concomitant]
     Active Substance: PREDNISONE
  12. Calcium citrate + D with mag [Concomitant]
  13. VITAMINS [Concomitant]
     Active Substance: VITAMINS

REACTIONS (8)
  - Fatigue [None]
  - Peripheral swelling [None]
  - Acute respiratory failure [None]
  - Pulmonary hypertension [None]
  - Right ventricular failure [None]
  - Condition aggravated [None]
  - Diet noncompliance [None]
  - Polyuria [None]

NARRATIVE: CASE EVENT DATE: 20230103
